FAERS Safety Report 8841787 (Version 1)
Quarter: 2012Q4

REPORT INFORMATION
  Report Type: 
  Country: US (occurrence: US)
  Receive Date: 20121016
  Receipt Date: 20121016
  Transmission Date: 20130627
  Serious: No
  Sender: FDA-Public Use
  Company Number: US-ENDO PHARMACEUTICALS INC.-TRIP20120003

PATIENT
  Sex: Female
  Weight: 49.94 kg

DRUGS (1)
  1. TRI-PREVIFEM TABLETS [Suspect]
     Indication: PRODUCT USED FOR UNKNOWN INDICATION
     Dosage: 1 TABLET
     Route: 048
     Dates: start: 201107

REACTIONS (15)
  - Abortion spontaneous [Unknown]
  - Hormone level abnormal [Unknown]
  - Pain [Unknown]
  - Adjustment disorder [Unknown]
  - Anxiety [Unknown]
  - Pregnancy on oral contraceptive [Unknown]
  - Depression [Unknown]
  - Migraine [Unknown]
  - Menorrhagia [Unknown]
  - Drug ineffective [Unknown]
  - Panic attack [None]
  - Affective disorder [None]
  - Anger [None]
  - Disturbance in attention [None]
  - Product quality issue [None]
